FAERS Safety Report 25104758 (Version 1)
Quarter: 2025Q1

REPORT INFORMATION
  Report Type: Spontaneous
  Country: US (occurrence: None)
  Receive Date: 20250320
  Receipt Date: 20250320
  Transmission Date: 20250408
  Serious: Yes (Other)
  Sender: FDA-CTU
  Company Number: None

PATIENT
  Age: 71 Year
  Sex: Female

DRUGS (14)
  1. OMNIPAQUE [Suspect]
     Active Substance: IOHEXOL
     Indication: Swallow study
     Dosage: 1 2  DAILY ORAL ?
     Route: 048
  2. LISINOPRIL [Concomitant]
     Active Substance: LISINOPRIL
  3. LEVOTHYROXINE [Concomitant]
     Active Substance: LEVOTHYROXINE
  4. CLONAZEPAM [Concomitant]
     Active Substance: CLONAZEPAM
  5. Flarex eye drops [Concomitant]
  6. FLONASE [Concomitant]
     Active Substance: FLUTICASONE PROPIONATE
  7. VITAMIN D3 [Concomitant]
     Active Substance: CHOLECALCIFEROL
  8. Optase [Concomitant]
  9. Organic saline nasal spray [Concomitant]
  10. Mylanta vanilla [Concomitant]
  11. acid reflux Calcium [Concomitant]
  12. DEXAMETHASONE [Suspect]
     Active Substance: DEXAMETHASONE
  13. FOOD PRODUCT, OTHER [Suspect]
     Active Substance: FOOD PRODUCT, OTHER
  14. FOOD PRODUCT, OTHER [Suspect]
     Active Substance: FOOD PRODUCT, OTHER

REACTIONS (11)
  - Nausea [None]
  - Abdominal pain upper [None]
  - Vomiting [None]
  - Diarrhoea [None]
  - Dizziness [None]
  - Asthenia [None]
  - Dehydration [None]
  - Abdominal pain [None]
  - Product contamination microbial [None]
  - Product contamination physical [None]
  - Chemical poisoning [None]

NARRATIVE: CASE EVENT DATE: 20250314
